FAERS Safety Report 24551324 (Version 1)
Quarter: 2024Q4

REPORT INFORMATION
  Report Type: Spontaneous
  Country: US (occurrence: US)
  Receive Date: 20241025
  Receipt Date: 20241025
  Transmission Date: 20250114
  Serious: No
  Sender: MERCK
  Company Number: US-009507513-2409USA009505

PATIENT
  Age: 58 Year
  Sex: Female

DRUGS (6)
  1. KEYTRUDA [Suspect]
     Active Substance: PEMBROLIZUMAB
     Indication: Metastases to lymph nodes
  2. KEYTRUDA [Suspect]
     Active Substance: PEMBROLIZUMAB
     Indication: Nasopharyngeal cancer metastatic
  3. CARBOPLATIN [Suspect]
     Active Substance: CARBOPLATIN
     Indication: Metastases to lymph nodes
     Dosage: UNK
  4. CARBOPLATIN [Suspect]
     Active Substance: CARBOPLATIN
     Indication: Keratinising squamous cell carcinoma of nasopharynx
  5. PACLITAXEL [Suspect]
     Active Substance: PACLITAXEL
     Indication: Nasopharyngeal cancer metastatic
     Dosage: UNK
  6. PACLITAXEL [Suspect]
     Active Substance: PACLITAXEL
     Indication: Metastases to lymph nodes

REACTIONS (2)
  - Off label use [Unknown]
  - Product use issue [Unknown]
